FAERS Safety Report 6019905-3 (Version None)
Quarter: 2008Q4

REPORT INFORMATION
  Report Type: 
  Country: None (occurrence: None)
  Receive Date: 20081223
  Receipt Date: 20081209
  Transmission Date: 20090506
  Serious: Yes (Hospitalization)
  Sender: FDA-Public Use
  Company Number: KV200801040

PATIENT
  Age: 58 Year
  Sex: Male
  Weight: 90.7 kg

DRUGS (7)
  1. ISOSORBIDE MONONITRATE [Suspect]
     Indication: CORONARY ARTERY DISEASE
     Dosage: 60 GM BID ORAL
     Route: 048
     Dates: start: 20040101
  2. VERAPAMIL [Concomitant]
  3. COREG [Concomitant]
  4. LISINOPRIL [Concomitant]
  5. GABAPENTIN [Concomitant]
  6. ATIVAN [Concomitant]
  7. DARVOCET-N 100 [Concomitant]

REACTIONS (4)
  - DEHYDRATION [None]
  - HYPOAESTHESIA [None]
  - INFLUENZA [None]
  - PRODUCT QUALITY ISSUE [None]
